FAERS Safety Report 6576719-3 (Version None)
Quarter: 2010Q1

REPORT INFORMATION
  Report Type: 
  Country: None (occurrence: None)
  Receive Date: 20100210
  Receipt Date: 20100106
  Transmission Date: 20100710
  Serious: Yes (Hospitalization)
  Sender: FDA-Public Use
  Company Number: JP-ROCHE-676703

PATIENT
  Sex: Female
  Weight: 53 kg

DRUGS (17)
  1. TAMIFLU [Suspect]
     Indication: INFLUENZA
     Route: 048
     Dates: start: 20091216, end: 20091217
  2. CELLCEPT [Suspect]
     Indication: SYSTEMIC LUPUS ERYTHEMATOSUS
     Route: 048
     Dates: start: 20091028, end: 20091028
  3. CELLCEPT [Suspect]
     Route: 048
     Dates: end: 20091105
  4. CELLCEPT [Suspect]
     Route: 048
     Dates: start: 20091106, end: 20091106
  5. MEDICON [Suspect]
     Indication: INFLUENZA
     Dosage: FORM: ORAL FORMULATION (NOT OTHERWISE SPECIFIED). DRUG: MEDICON (DEXTROMETHORPHAN HYDROBROMIDE)
     Route: 048
     Dates: start: 20091216, end: 20091217
  6. BAKTAR [Suspect]
     Indication: PROPHYLAXIS
     Dosage: FORM: ORAL FORMULATION (NOT OTHERWISE SPECIFIED).
     Route: 048
     Dates: start: 20091013
  7. OMEPRAZOLE [Suspect]
     Indication: DRUG USE FOR UNKNOWN INDICATION
     Route: 048
  8. TAKEPRON [Suspect]
     Indication: PROPHYLAXIS
     Dosage: DOSE FORM:ORAL FORMULATION (NOT OTHERWISE SPECIFIED)
     Route: 048
     Dates: start: 20091001
  9. ITRIZOLE [Suspect]
     Indication: PROPHYLAXIS
     Route: 048
     Dates: start: 20091016
  10. PERSANTINE [Suspect]
     Indication: SYSTEMIC LUPUS ERYTHEMATOSUS
     Dosage: FORM: SUSTAINED RELEASE CAPSULE. DRUG NAME:PERSANTIN-L.
     Route: 048
     Dates: start: 20091016
  11. BONALON [Suspect]
     Indication: PROPHYLAXIS
     Dosage: REPORTED AS BONALON (ALENDRONATE SODIUM HYDRATE)
     Route: 048
     Dates: start: 20091023
  12. CRESTOR [Suspect]
     Indication: HYPERCHOLESTEROLAEMIA
     Route: 048
     Dates: start: 20091027
  13. ZETIA [Suspect]
     Indication: HYPERCHOLESTEROLAEMIA
     Route: 048
     Dates: start: 20091129
  14. COCARL [Suspect]
     Indication: INFLUENZA
     Dosage: NOTE:TAKEN AS NEEDED,DOSE FORM: ORAL FORMULATION(NOT OTHERWISE SPECIFIED),DRUG:COCARL(ACETAMINOPHEN)
     Route: 048
     Dates: start: 20091216, end: 20091217
  15. MUCODYNE [Suspect]
     Indication: INFLUENZA
     Dosage: FORM: ORAL FORMULATION (NOT OTHERWISE SPECIFIED).
     Route: 048
     Dates: start: 20091216, end: 20091217
  16. METHYLPREDNISOLONE SODIUM SUCCINATE [Concomitant]
     Route: 041
     Dates: start: 20091001, end: 20091003
  17. PREDONINE [Concomitant]
     Route: 048
     Dates: start: 20091004

REACTIONS (2)
  - AGRANULOCYTOSIS [None]
  - PNEUMONIA [None]
